FAERS Safety Report 21704622 (Version 2)
Quarter: 2022Q4

REPORT INFORMATION
  Report Type: Spontaneous
  Country: JP (occurrence: JP)
  Receive Date: 20221209
  Receipt Date: 20221221
  Transmission Date: 20230112
  Serious: Yes (Death)
  Sender: FDA-Public Use
  Company Number: JP-CHUGAI-2022042041

PATIENT
  Age: 67 Year
  Sex: Male
  Weight: 69 kg

DRUGS (1)
  1. GAZYVA [Suspect]
     Active Substance: OBINUTUZUMAB
     Indication: Follicular lymphoma
     Dosage: MOST RECENT DOSE: /JUN/2022, 1,000 MG, ONCE EVERY TWO MONTHS
     Route: 041

REACTIONS (2)
  - Interstitial lung disease [Fatal]
  - COVID-19 [Fatal]

NARRATIVE: CASE EVENT DATE: 20220831
